FAERS Safety Report 7313305-1 (Version None)
Quarter: 2011Q1

REPORT INFORMATION
  Report Type: 
  Country: None (occurrence: None)
  Receive Date: 20110225
  Receipt Date: 20100911
  Transmission Date: 20110831
  Serious: No
  Sender: FDA-Public Use
  Company Number: US-MYLANLABS-2010S1016944

PATIENT

DRUGS (1)
  1. METFORMIN HCL [Suspect]

REACTIONS (4)
  - NAUSEA [None]
  - BLOOD GLUCOSE ABNORMAL [None]
  - VOMITING [None]
  - DRUG INEFFECTIVE [None]
